FAERS Safety Report 18862078 (Version 1)
Quarter: 2021Q1

REPORT INFORMATION
  Report Type: Other
  Country: GB (occurrence: GB)
  Receive Date: 20210208
  Receipt Date: 20210208
  Transmission Date: 20210420
  Serious: Yes (Other)
  Sender: FDA-Public Use
  Company Number: GB-ROCHE-2701848

PATIENT

DRUGS (2)
  1. TOCILIZUMAB. [Suspect]
     Active Substance: TOCILIZUMAB
     Indication: RHEUMATOID ARTHRITIS
     Route: 042
  2. RITUXIMAB. [Suspect]
     Active Substance: RITUXIMAB
     Indication: RHEUMATOID ARTHRITIS
     Route: 042

REACTIONS (12)
  - Ulcerative keratitis [Unknown]
  - Abdominal pain [Unknown]
  - Chest pain [Unknown]
  - Pneumonia [Unknown]
  - Urinary tract infection [Unknown]
  - Chronic obstructive pulmonary disease [Unknown]
  - Lower respiratory tract infection [Unknown]
  - Pilonidal cyst [Unknown]
  - Diarrhoea [Unknown]
  - Cytokine release syndrome [Unknown]
  - Dental cyst [Unknown]
  - Pain in extremity [Unknown]
